FAERS Safety Report 18375639 (Version 1)
Quarter: 2020Q4

REPORT INFORMATION
  Report Type: Spontaneous
  Country: IT (occurrence: IT)
  Receive Date: 20201013
  Receipt Date: 20201013
  Transmission Date: 20210114
  Serious: Yes (Other)
  Sender: FDA-Public Use
  Company Number: IT-AMGEN-ITASP2020163866

PATIENT
  Sex: Female

DRUGS (5)
  1. MITOMYCIN C [Concomitant]
     Active Substance: MITOMYCIN
     Indication: BREAST CANCER
     Dosage: 7 MICROGRAM/SQ. METER, Q2WK
     Route: 042
  2. FILGRASTIM [Suspect]
     Active Substance: FILGRASTIM
     Indication: PROPHYLAXIS
     Dosage: 5 MICROGRAM/KILOGRAM, QD
     Route: 058
  3. MITOXANTRONE [Concomitant]
     Active Substance: MITOXANTRONE HYDROCHLORIDE
     Indication: BREAST CANCER
     Dosage: 7 MICROGRAM/SQ. METER, Q2WK
     Route: 042
  4. ONDANSETRON [Concomitant]
     Active Substance: ONDANSETRON
     Indication: PROPHYLAXIS
     Dosage: UNK
     Route: 042
  5. METHOTREXATE. [Concomitant]
     Active Substance: METHOTREXATE
     Indication: BREAST CANCER
     Dosage: 35 MICROGRAM/SQ. METER
     Route: 042

REACTIONS (9)
  - Myelosuppression [Unknown]
  - Therapeutic product effect incomplete [Unknown]
  - Anaemia [Unknown]
  - Neutropenia [Recovered/Resolved]
  - Rash [Unknown]
  - Leukocytosis [Unknown]
  - Bone pain [Unknown]
  - Breast cancer [Unknown]
  - Thrombocytopenia [Recovered/Resolved]
